FAERS Safety Report 6899973-7 (Version None)
Quarter: 2010Q3

REPORT INFORMATION
  Report Type: 
  Country: None (occurrence: None)
  Receive Date: 20100708
  Receipt Date: 20090929
  Transmission Date: 20110219
  Serious: Yes (Other)
  Sender: FDA-Public Use
  Company Number: 2009263425

PATIENT
  Age: 27 Year
  Sex: Female
  Weight: 49.9 kg

DRUGS (1)
  1. CHANTIX [Suspect]
     Indication: SMOKING CESSATION THERAPY
     Dosage: 0.5 MG, 2X/DAY 1 MG, 2X/DAY
     Dates: start: 20090801, end: 20090813

REACTIONS (3)
  - DEPRESSION [None]
  - IMPAIRED WORK ABILITY [None]
  - SUICIDAL IDEATION [None]
